FAERS Safety Report 6086342-5 (Version None)
Quarter: 2009Q1

REPORT INFORMATION
  Report Type: 
  Country: None (occurrence: None)
  Receive Date: 20090220
  Receipt Date: 20090216
  Transmission Date: 20090719
  Serious: Yes (Hospitalization)
  Sender: FDA-Public Use
  Company Number: US-GILEAD-2008-0019620

PATIENT
  Sex: Female
  Weight: 56.296 kg

DRUGS (7)
  1. LETAIRIS [Suspect]
     Indication: PULMONARY HYPERTENSION
     Route: 048
     Dates: start: 20080122, end: 20081201
  2. REVATIO [Suspect]
     Indication: PULMONARY HYPERTENSION
     Route: 048
     Dates: start: 20061228, end: 20081201
  3. DIGOXIN [Concomitant]
     Route: 048
  4. ZAROXOLYN [Concomitant]
     Route: 048
  5. PROMETHAZINE [Concomitant]
     Route: 048
  6. HYDROCODONE BITARTRATE AND ACETAMINOPHEN [Concomitant]
     Route: 048
  7. FORTEO [Concomitant]
     Route: 058

REACTIONS (2)
  - HEPATIC ENCEPHALOPATHY [None]
  - LIVER INJURY [None]
